FAERS Safety Report 4938305-8 (Version None)
Quarter: 2006Q1

REPORT INFORMATION
  Report Type: 
  Country: None (occurrence: None)
  Receive Date: 20060309
  Receipt Date: 20060118
  Transmission Date: 20060701
  Serious: Yes (Hospitalization, Disabling)
  Sender: FDA-Public Use
  Company Number: JP-JPN-A200600239

PATIENT
  Age: 56 Year
  Sex: Male

DRUGS (6)
  1. EPIVIR [Suspect]
     Indication: ACQUIRED IMMUNODEFICIENCY SYNDROME
     Dosage: 150MG TWICE PER DAY
     Route: 048
     Dates: start: 20051221, end: 20051230
  2. VIREAD [Suspect]
     Indication: ACQUIRED IMMUNODEFICIENCY SYNDROME
     Dosage: 300MG PER DAY
     Route: 048
     Dates: start: 20051221, end: 20051230
  3. STOCRIN [Concomitant]
     Indication: ACQUIRED IMMUNODEFICIENCY SYNDROME
     Dosage: 600MG PER DAY
     Route: 048
     Dates: start: 20051221, end: 20051227
  4. COTRIM [Concomitant]
     Route: 048
     Dates: start: 20051221
  5. DIFLUCAN [Concomitant]
     Route: 065
     Dates: start: 20051221
  6. DENOSINE [Concomitant]
     Dosage: 250MG PER DAY
     Route: 048
     Dates: start: 20060116, end: 20060122

REACTIONS (6)
  - APATHY [None]
  - DECREASED APPETITE [None]
  - DEPRESSED LEVEL OF CONSCIOUSNESS [None]
  - LISTLESS [None]
  - RENAL DISORDER [None]
  - RENAL FAILURE ACUTE [None]
